FAERS Safety Report 4674057-7 (Version None)
Quarter: 2005Q2

REPORT INFORMATION
  Report Type: 
  Country: None (occurrence: None)
  Receive Date: 20050525
  Receipt Date: 20050510
  Transmission Date: 20051028
  Serious: Yes (Death, Hospitalization, Other)
  Sender: FDA-Public Use
  Company Number: FR_050506393

PATIENT
  Age: 40 Year
  Sex: Female

DRUGS (4)
  1. ALIMTA [Suspect]
     Indication: BRONCHIAL CARCINOMA
  2. FOLIC ACID [Concomitant]
  3. VITAMIN B-12 [Concomitant]
  4. NON-STEROID ANTI-INFLAMMATORY DRUG [Concomitant]

REACTIONS (4)
  - MALIGNANT NEOPLASM PROGRESSION [None]
  - OVERDOSE [None]
  - PANCYTOPENIA [None]
  - RENAL FAILURE [None]
